FAERS Safety Report 15154157 (Version 1)
Quarter: 2018Q3

REPORT INFORMATION
  Report Type: Spontaneous
  Country: US (occurrence: US)
  Receive Date: 20180717
  Receipt Date: 20180717
  Transmission Date: 20181010
  Serious: No
  Sender: FDA-Public Use
  Company Number: US-PFIZER INC-2018287395

PATIENT
  Sex: Female

DRUGS (1)
  1. ADVIL LIQUI?GELS [Suspect]
     Active Substance: IBUPROFEN
     Indication: TOOTHACHE
     Dates: start: 20180713

REACTIONS (2)
  - Intentional product misuse [Unknown]
  - Burning sensation [Unknown]

NARRATIVE: CASE EVENT DATE: 20180713
